FAERS Safety Report 12749974 (Version 1)
Quarter: 2016Q3

REPORT INFORMATION
  Report Type: Spontaneous
  Country: US (occurrence: US)
  Receive Date: 20160915
  Receipt Date: 20160915
  Transmission Date: 20161109
  Serious: Yes (Hospitalization)
  Sender: FDA-Public Use
  Company Number: None

PATIENT
  Age: 74 Year
  Sex: Female
  Weight: 37 kg

DRUGS (1)
  1. ERIBULIN [Suspect]
     Active Substance: ERIBULIN
     Indication: CERVIX CARCINOMA
     Dosage: OTHER STRENGTH:;OTHER DOSE:;OTHER FREQUENCY:D1/D8 OF Q 21 DAYS;OTHER ROUTE:
     Route: 042
     Dates: start: 20160721, end: 20160907

REACTIONS (8)
  - Anaemia [None]
  - Superinfection [None]
  - Systemic infection [None]
  - Failure to thrive [None]
  - Neutrophilia [None]
  - Pelvic mass [None]
  - Bandaemia [None]
  - Necrosis [None]

NARRATIVE: CASE EVENT DATE: 20160914
